FAERS Safety Report 8443875-1 (Version None)
Quarter: 2012Q2

REPORT INFORMATION
  Report Type: 
  Country: None (occurrence: None)
  Receive Date: 20120618
  Receipt Date: 20120612
  Transmission Date: 20120825
  Serious: Yes (Other)
  Sender: FDA-Public Use
  Company Number: GB-SANOFI-AVENTIS-2012SA042562

PATIENT
  Age: 58 Year
  Sex: Female

DRUGS (5)
  1. VENTOLIN [Concomitant]
  2. INSULIN HUMAN REGULAR [Suspect]
     Indication: TYPE 2 DIABETES MELLITUS
     Dosage: BREAKFAST 14 UNITS, LUNCH 16 UNITS, DINNER 12 UNITS
     Route: 058
     Dates: start: 20111101
  3. METFORMIN HCL [Concomitant]
  4. LANTUS [Suspect]
     Indication: TYPE 2 DIABETES MELLITUS
     Dosage: DOSE: BREAKFAST 24 UNITS, BED 20 UNITS
     Route: 058
     Dates: start: 20111101
  5. RAMIPRIL [Concomitant]

REACTIONS (4)
  - DRUG ADMINISTRATION ERROR [None]
  - LOWER RESPIRATORY TRACT INFECTION [None]
  - NASOPHARYNGITIS [None]
  - BLOOD GLUCOSE FLUCTUATION [None]
